FAERS Safety Report 5128154-2 (Version None)
Quarter: 2006Q4

REPORT INFORMATION
  Report Type: 
  Country: None (occurrence: None)
  Receive Date: 20061011
  Receipt Date: 20060925
  Transmission Date: 20070319
  Serious: Yes (Life-Threatening, Hospitalization)
  Sender: FDA-Public Use
  Company Number: 0819218

PATIENT
  Age: 22 Year
  Sex: Female
  Weight: 125 kg

DRUGS (4)
  1. KEPPRA [Suspect]
     Indication: EPILEPSY
     Dosage: 1500 MG / D PO
     Route: 048
     Dates: start: 20060324
  2. LAMOTRIGINE [Concomitant]
  3. TAVOR [Concomitant]
  4. JODTHYROX [Concomitant]

REACTIONS (5)
  - COMA [None]
  - FATIGUE [None]
  - NIGHTMARE [None]
  - OVERDOSE [None]
  - RESTLESSNESS [None]
